FAERS Safety Report 12331689 (Version 1)
Quarter: 2016Q2

REPORT INFORMATION
  Report Type: Spontaneous
  Country: CN (occurrence: CN)
  Receive Date: 20160504
  Receipt Date: 20160504
  Transmission Date: 20160815
  Serious: Yes (Other)
  Sender: FDA-Public Use
  Company Number: CN-PFIZER INC-2016224775

PATIENT
  Age: 40 Year
  Sex: Female
  Weight: 80 kg

DRUGS (2)
  1. PHARMORUBICIN [Suspect]
     Active Substance: EPIRUBICIN
     Indication: BREAST CANCER
     Dosage: 140 MG, ONCE DAILY DAY 1, EVERY 3 WEEKS
     Route: 041
     Dates: start: 20150913
  2. ANZATAX /01116001/ [Suspect]
     Active Substance: PACLITAXEL
     Indication: BREAST CANCER
     Dosage: 270 MG, ONCE DAILY DAY 2, EVERY 3 WEEKS
     Route: 041
     Dates: start: 20150914

REACTIONS (3)
  - Bone marrow failure [Recovering/Resolving]
  - Arthralgia [Recovering/Resolving]
  - Diarrhoea [Recovered/Resolved]

NARRATIVE: CASE EVENT DATE: 20150916
